FAERS Safety Report 7959962-8 (Version None)
Quarter: 2011Q4

REPORT INFORMATION
  Report Type: 
  Country: None (occurrence: None)
  Receive Date: 20111206
  Receipt Date: 20110120
  Transmission Date: 20120403
  Serious: Yes (Other)
  Sender: FDA-Public Use
  Company Number: US-ENDO PHARMACEUTICALS INC.-SULF20110013

PATIENT
  Age: 48 Year
  Sex: Male
  Weight: 93.07 kg

DRUGS (4)
  1. EFFEXOR [Suspect]
     Indication: SCHIZOPHRENIA
     Route: 048
  2. SYNTHROID [Suspect]
     Indication: THYROID CANCER
     Route: 048
  3. SULFASALAZINE [Suspect]
     Indication: PRODUCT USED FOR UNKNOWN INDICATION
     Route: 048
  4. GABAPENTIN [Suspect]
     Indication: SCHIZOPHRENIA

REACTIONS (2)
  - THYROID CANCER [None]
  - DISEASE RECURRENCE [None]
